FAERS Safety Report 4563258-4 (Version None)
Quarter: 2005Q1

REPORT INFORMATION
  Report Type: 
  Country: None (occurrence: None)
  Receive Date: 20050128
  Receipt Date: 20050117
  Transmission Date: 20050727
  Serious: Yes (Other)
  Sender: FDA-Public Use
  Company Number: GB-ABBOTT-05P-167-0287194-00

PATIENT
  Age: 72 Year
  Sex: Female

DRUGS (2)
  1. CLARITHROMYCIN [Suspect]
     Indication: DRUG USE FOR UNKNOWN INDICATION
     Route: 048
     Dates: start: 20041230
  2. ACETAMINOPHEN [Concomitant]
     Indication: BODY TEMPERATURE INCREASED
     Route: 048

REACTIONS (8)
  - AFFECT LABILITY [None]
  - ANXIETY [None]
  - CONFUSIONAL STATE [None]
  - DYSPEPSIA [None]
  - HEADACHE [None]
  - INSOMNIA [None]
  - PERSONALITY CHANGE [None]
  - RESTLESSNESS [None]
